FAERS Safety Report 24529501 (Version 1)
Quarter: 2024Q4

REPORT INFORMATION
  Report Type: Spontaneous
  Country: JP (occurrence: JP)
  Receive Date: 20241021
  Receipt Date: 20241021
  Transmission Date: 20250114
  Serious: Yes (Death, Other)
  Sender: JAZZ
  Company Number: JP-JAZZ PHARMACEUTICALS-2024-JP-018664

PATIENT
  Age: 65 Year
  Sex: Female

DRUGS (1)
  1. VYXEOS [Suspect]
     Active Substance: CYTARABINE\DAUNORUBICIN
     Indication: Leukaemia
     Dosage: UNK
     Route: 042
     Dates: start: 20241011, end: 20241011

REACTIONS (1)
  - Acute myeloid leukaemia [Fatal]
